FAERS Safety Report 6633312-1 (Version None)
Quarter: 2010Q1

REPORT INFORMATION
  Report Type: 
  Country: None (occurrence: None)
  Receive Date: 20100312
  Receipt Date: 20100301
  Transmission Date: 20100710
  Serious: Yes (Hospitalization)
  Sender: FDA-Public Use
  Company Number: IT-PFIZER INC-2010025655

PATIENT
  Age: 68 Year
  Sex: Male

DRUGS (2)
  1. SUTENT [Suspect]
     Indication: RENAL CANCER
     Dosage: 50 MG DAILY
     Route: 048
     Dates: start: 20070828, end: 20100119
  2. LACIDIPINE [Concomitant]
     Dosage: 6 MG, UNK
     Route: 048

REACTIONS (3)
  - ATAXIA [None]
  - HEADACHE [None]
  - NAUSEA [None]
